FAERS Safety Report 19501025 (Version 1)
Quarter: 2021Q3

REPORT INFORMATION
  Report Type: Spontaneous
  Country: US (occurrence: US)
  Receive Date: 20210707
  Receipt Date: 20210707
  Transmission Date: 20211014
  Serious: No
  Sender: FDA-Public Use
  Company Number: US-AIMMUNE THERAPEUTICS, INC.-2021AIMT00387

PATIENT

DRUGS (5)
  1. ZYRTEC [Concomitant]
     Active Substance: CETIRIZINE HYDROCHLORIDE
     Indication: ABDOMINAL PAIN UPPER
     Dosage: 10 MG, 2X/DAY
     Route: 048
     Dates: start: 20210420, end: 20210420
  2. ZOFRAN [ONDANSETRON HYDROCHLORIDE DIHYDRATE] [Concomitant]
     Indication: NAUSEA
     Dosage: 4 MG, AS NEEDED
     Route: 048
     Dates: start: 20210420
  3. PALFORZIA [Suspect]
     Active Substance: PEANUT
     Indication: FOOD ALLERGY
     Dosage: 3 MG, 1X/DAY
     Route: 048
     Dates: start: 20210421, end: 20210511
  4. PALFORZIA [Suspect]
     Active Substance: PEANUT
     Dosage: 3 MG, ONCE, LAST DOSE PRIOR TO ONSET OF EVENT.
     Route: 048
     Dates: start: 20210421, end: 20210421
  5. PEPCID [ALUMINIUM HYDROXIDE;MAGNESIUM TRISILICATE;SODIUM ALGINATE] [Concomitant]
     Indication: ABDOMINAL PAIN UPPER
     Dosage: 20 MG, 2X/DAY
     Route: 048
     Dates: start: 20210420, end: 20210420

REACTIONS (3)
  - Abdominal pain upper [Recovered/Resolved]
  - Weight increased [None]
  - Nausea [Recovered/Resolved]

NARRATIVE: CASE EVENT DATE: 20210421
